FAERS Safety Report 4648801-9 (Version None)
Quarter: 2005Q2

REPORT INFORMATION
  Report Type: 
  Country: None (occurrence: None)
  Receive Date: 20050429
  Receipt Date: 20050419
  Transmission Date: 20051028
  Serious: Yes (Life-Threatening)
  Sender: FDA-Public Use
  Company Number: FR-JNJFOC-20050406708

PATIENT
  Age: 71 Year
  Sex: Male

DRUGS (6)
  1. IXPRIM [Suspect]
     Route: 049
  2. ELISOR [Suspect]
     Route: 049
  3. PREVISCAN [Interacting]
     Indication: AORTIC VALVE REPLACEMENT
     Route: 049
  4. LASILIX [Concomitant]
     Route: 065
  5. FONZYLANE [Concomitant]
     Route: 049
  6. COVERSYL [Concomitant]
     Indication: ESSENTIAL HYPERTENSION
     Route: 049

REACTIONS (7)
  - ANAEMIA [None]
  - ARTERITIS [None]
  - DRUG INTERACTION [None]
  - HAEMATOMA [None]
  - MUSCLE HAEMORRHAGE [None]
  - TOE AMPUTATION [None]
  - TREATMENT NONCOMPLIANCE [None]
